FAERS Safety Report 4847155-2 (Version None)
Quarter: 2005Q4

REPORT INFORMATION
  Report Type: 
  Country: None (occurrence: None)
  Receive Date: 20051205
  Receipt Date: 20051123
  Transmission Date: 20060501
  Serious: Yes (Hospitalization)
  Sender: FDA-Public Use
  Company Number: 2005160260

PATIENT

DRUGS (5)
  1. LYRICA [Suspect]
     Indication: ILL-DEFINED DISORDER
     Dosage: 150 MG (50 MG, 3 IN 1 D)
  2. DIOVAN [Suspect]
     Indication: ILL-DEFINED DISORDER
  3. ANAPROX [Suspect]
     Indication: ILL-DEFINED DISORDER
  4. PHENYLTOLOXAMINE CITRATE (PHENYLTOLOXAMINE CITRATE) [Suspect]
     Indication: ILL-DEFINED DISORDER
  5. ALL OTHER THERAPEUTIC PRODUCTS (ALL OTHER THERAPEUTIC PRODUCTS) [Suspect]
     Indication: ILL-DEFINED DISORDER

REACTIONS (1)
  - LOSS OF CONSCIOUSNESS [None]
